FAERS Safety Report 7672629-9 (Version None)
Quarter: 2011Q3

REPORT INFORMATION
  Report Type: 
  Country: None (occurrence: None)
  Receive Date: 20110804
  Receipt Date: 20110801
  Transmission Date: 20111222
  Serious: No
  Sender: FDA-Public Use
  Company Number: 1000021552

PATIENT
  Age: 63 Year
  Sex: Male

DRUGS (4)
  1. BYSTOLIC [Suspect]
     Indication: HYPERTENSION
     Dosage: 10 MG (10 MG, 1 IN 1 D), ORAL
     Route: 048
     Dates: start: 20090604, end: 20110201
  2. HYDROCHLOROTHIAZIDE [Concomitant]
  3. LAMISIL (TERBINAFINE HYDROCHLORIDE) (TERBINAFINE HYDROCHLORIDE) [Concomitant]
  4. LISINOPRIL [Concomitant]

REACTIONS (4)
  - SINUS BRADYCARDIA [None]
  - BLOOD THYROID STIMULATING HORMONE INCREASED [None]
  - VENTRICULAR EXTRASYSTOLES [None]
  - INTERNATIONAL NORMALISED RATIO DECREASED [None]
